FAERS Safety Report 20166837 (Version 2)
Quarter: 2022Q1

REPORT INFORMATION
  Report Type: Spontaneous
  Country: ES (occurrence: ES)
  Receive Date: 20211209
  Receipt Date: 20220126
  Transmission Date: 20220423
  Serious: Yes (Other)
  Sender: FDA-Public Use
  Company Number: ES-NOVARTISPH-NVSC2021ES280178

PATIENT
  Age: 68 Year
  Sex: Female

DRUGS (33)
  1. OMEPRAZOLE [Suspect]
     Active Substance: OMEPRAZOLE
     Indication: Headache
     Dosage: 25 MG, TID
     Route: 065
  2. OMEPRAZOLE [Suspect]
     Active Substance: OMEPRAZOLE
     Dosage: UNK, UNKNOWN
     Route: 065
  3. INDOMETHACIN [Suspect]
     Active Substance: INDOMETHACIN
     Indication: Headache
     Dosage: 25 MG, TID
     Route: 065
  4. INDOMETHACIN [Suspect]
     Active Substance: INDOMETHACIN
     Dosage: UNK, UNKNOWN
     Route: 065
  5. LITHIUM [Concomitant]
     Active Substance: LITHIUM
     Indication: Headache
     Dosage: UNK
     Route: 065
  6. LITHIUM [Concomitant]
     Active Substance: LITHIUM
     Dosage: UNK, UNKNOWN
     Route: 065
  7. CARBAMAZEPINE [Concomitant]
     Active Substance: CARBAMAZEPINE
     Indication: Headache
     Dosage: UNK
     Route: 065
  8. CARBAMAZEPINE [Concomitant]
     Active Substance: CARBAMAZEPINE
     Dosage: UNK, UNKNOWN
     Route: 065
  9. GALCANEZUMAB [Concomitant]
     Active Substance: GALCANEZUMAB
     Indication: Headache
     Dosage: 120 MG, QMO
     Route: 065
  10. GALCANEZUMAB [Concomitant]
     Active Substance: GALCANEZUMAB
     Dosage: 240 MILLIGRAM, QMO
     Route: 065
  11. BOTULINUM TOXIN TYPE A [Concomitant]
     Active Substance: BOTULINUM TOXIN TYPE A
     Indication: Headache
     Dosage: UNK
     Route: 065
  12. BOTULINUM TOXIN TYPE A [Concomitant]
     Active Substance: BOTULINUM TOXIN TYPE A
     Dosage: UNK, UNKNOWN
     Route: 065
  13. MIRTAZAPINE [Concomitant]
     Active Substance: MIRTAZAPINE
     Indication: Headache
     Dosage: UNK
     Route: 065
  14. MIRTAZAPINE [Concomitant]
     Active Substance: MIRTAZAPINE
     Dosage: UNK, UNKNOWN
     Route: 065
  15. TOPIRAMATE [Concomitant]
     Active Substance: TOPIRAMATE
     Indication: Headache
     Dosage: UNK
     Route: 065
  16. TOPIRAMATE [Concomitant]
     Active Substance: TOPIRAMATE
     Dosage: UNK, UNKNOWN
     Route: 065
  17. PREGABALIN [Concomitant]
     Active Substance: PREGABALIN
     Indication: Headache
     Dosage: UNK
     Route: 065
  18. PREGABALIN [Concomitant]
     Active Substance: PREGABALIN
     Dosage: UNK, UNKNOWN
     Route: 065
  19. NAPROXEN [Concomitant]
     Active Substance: NAPROXEN
     Indication: Headache
     Dosage: UNK
     Route: 065
  20. NAPROXEN [Concomitant]
     Active Substance: NAPROXEN
     Dosage: UNK, UNKNOWN
     Route: 065
  21. PREDNISONE [Concomitant]
     Active Substance: PREDNISONE
     Indication: Headache
     Dosage: UNK
     Route: 065
  22. PREDNISONE [Concomitant]
     Active Substance: PREDNISONE
     Dosage: UNK, UNKNOWN
     Route: 065
  23. LAMOTRIGINE [Concomitant]
     Active Substance: LAMOTRIGINE
     Indication: Headache
     Dosage: UNK
     Route: 065
  24. LAMOTRIGINE [Concomitant]
     Active Substance: LAMOTRIGINE
     Dosage: UNK, UNKNOWN
     Route: 065
  25. SUMATRIPTAN [Concomitant]
     Active Substance: SUMATRIPTAN
     Indication: Headache
     Dosage: UNK
     Route: 065
  26. SUMATRIPTAN [Concomitant]
     Active Substance: SUMATRIPTAN
     Dosage: UNK, UNKNOWN
     Route: 065
  27. CELECOXIB [Concomitant]
     Active Substance: CELECOXIB
     Indication: Headache
     Dosage: UNK
     Route: 065
  28. CELECOXIB [Concomitant]
     Active Substance: CELECOXIB
     Dosage: UNK, UNKNOWN
     Route: 065
  29. AMITRIPTYLINE [Concomitant]
     Active Substance: AMITRIPTYLINE
     Indication: Headache
     Dosage: UNK
     Route: 065
  30. AMITRIPTYLINE [Concomitant]
     Active Substance: AMITRIPTYLINE
     Dosage: UNK, UNKNOWN
     Route: 065
  31. DULOXETINE [Concomitant]
     Active Substance: DULOXETINE
     Indication: Headache
     Dosage: UNK
     Route: 065
  32. DULOXETINE [Concomitant]
     Active Substance: DULOXETINE
     Dosage: UNK, UNKNOWN
     Route: 065
  33. NEBIVOLOL HYDROCHLORIDE [Concomitant]
     Active Substance: NEBIVOLOL HYDROCHLORIDE
     Indication: Headache
     Dosage: UNK, UNKNOWN
     Route: 065

REACTIONS (5)
  - Epigastric discomfort [Unknown]
  - Balance disorder [Unknown]
  - Dizziness [Unknown]
  - Nausea [Unknown]
  - Abdominal discomfort [Unknown]
